FAERS Safety Report 5308317-3 (Version None)
Quarter: 2007Q2

REPORT INFORMATION
  Report Type: 
  Country: None (occurrence: None)
  Receive Date: 20070423
  Receipt Date: 20070423
  Transmission Date: 20071010
  Serious: Yes (Hospitalization)
  Sender: FDA-Public Use
  Company Number: None

PATIENT
  Sex: Male

DRUGS (10)
  1. CETUXIMAB [Suspect]
     Indication: PANCREATIC CARCINOMA
     Dosage: IV  (1850MG)
     Route: 042
     Dates: start: 20070411
  2. GEMCITABINE HCL [Suspect]
     Indication: PANCREATIC CARCINOMA
     Dosage: IV  (1850MG)
     Route: 042
     Dates: start: 20070411
  3. OXALIPLATIN [Suspect]
     Indication: PANCREATIC CARCINOMA
     Dosage: IV  (185MG)
     Route: 042
     Dates: start: 20070412
  4. NEXIUM [Concomitant]
  5. PANCREAS MT 3 [Concomitant]
  6. LASIX [Concomitant]
  7. COMPAZINE [Concomitant]
  8. ZOFRAN [Concomitant]
  9. IMODIUM [Concomitant]
  10. POTASSIUM CHLORIDE [Concomitant]

REACTIONS (3)
  - AGITATION [None]
  - ANAEMIA [None]
  - MENTAL STATUS CHANGES [None]
